FAERS Safety Report 4295760-7 (Version None)
Quarter: 2004Q1

REPORT INFORMATION
  Report Type: 
  Country: None (occurrence: None)
  Receive Date: 20040212
  Receipt Date: 20040203
  Transmission Date: 20041129
  Serious: Yes (Other)
  Sender: FDA-Public Use
  Company Number: DE-JNJFOC-20031200985

PATIENT
  Age: 8 Year
  Sex: Female
  Weight: 23 kg

DRUGS (8)
  1. ITRACONAZOLE [Suspect]
     Indication: BRONCHOPULMONARY ASPERGILLOSIS
     Dosage: 150 MG, 1 IN 1 DAY, ORAL
     Route: 048
     Dates: start: 20030601, end: 20031201
  2. BUDENOSIDE (BUDESONIDE) [Suspect]
     Indication: BRONCHOPULMONARY ASPERGILLOSIS
     Dosage: 40 MG, 1 IN 1 DAY, INHALATION
     Route: 055
     Dates: start: 20030201, end: 20031201
  3. VANCOMYCIN [Concomitant]
  4. TOBRAMYCIN [Concomitant]
  5. LINEZOLID (LINEZOLID) [Concomitant]
  6. ROXITHROMYCIN (ROXITHROMYCIN) [Concomitant]
  7. FORMOTEROL (FORMOTEROL) [Concomitant]
  8. SALBUTAMOL (SALBUTAMOL) [Concomitant]

REACTIONS (3)
  - CUSHINGOID [None]
  - DRUG INTERACTION [None]
  - HYPERTRICHOSIS [None]
